FAERS Safety Report 9038859 (Version 2)
Quarter: 2013Q1

REPORT INFORMATION
  Report Type: Spontaneous
  Country: US (occurrence: US)
  Receive Date: 20130129
  Receipt Date: 20130206
  Transmission Date: 20140127
  Serious: Yes (Hospitalization)
  Sender: FDA-Public Use
  Company Number: US-SANOFI-AVENTIS-2013SA003323

PATIENT
  Age: 62 Year
  Sex: Female
  Weight: 124.72 kg

DRUGS (2)
  1. DOCETAXEL [Suspect]
     Indication: NEOPLASM MALIGNANT
     Dosage: EVERY 28 DAYS
     Route: 042
     Dates: start: 20111031, end: 20120809
  2. INVESTIGATIONAL DRUG [Suspect]
     Indication: NEOPLASM MALIGNANT
     Route: 042
     Dates: start: 20111028, end: 20121128

REACTIONS (1)
  - Acute haemolytic transfusion reaction [Recovered/Resolved with Sequelae]
